FAERS Safety Report 4518681-0 (Version None)
Quarter: 2004Q4

REPORT INFORMATION
  Report Type: 
  Country: None (occurrence: None)
  Receive Date: 20041201
  Receipt Date: 20041126
  Transmission Date: 20050328
  Serious: Yes (Hospitalization)
  Sender: FDA-Public Use
  Company Number: FRWYE237526NOV04

PATIENT
  Age: 70 Year
  Sex: Female

DRUGS (8)
  1. RAPAMUNE [Suspect]
     Indication: PROPHYLAXIS AGAINST TRANSPLANT REJECTION
     Dosage: 1 MG 1X PER 1 DAY  ORAL
     Route: 048
     Dates: start: 20040826, end: 20040928
  2. CELLCEPT [Suspect]
     Indication: PROPHYLAXIS AGAINST TRANSPLANT REJECTION
     Dosage: 1 G 1X PER 1 DAY  ORAL
     Route: 048
     Dates: start: 20030615
  3. TAHOR (ATORVASTATIN) [Concomitant]
  4. ARIMIDEX [Concomitant]
  5. ATENOLOL [Concomitant]
  6. BROMAZEPAM [Concomitant]
  7. ATACAND [Concomitant]
  8. TERCIAN (CYAMEMAZINE) [Concomitant]

REACTIONS (7)
  - ARTHRALGIA [None]
  - CONJUNCTIVITIS [None]
  - DIARRHOEA [None]
  - FACE OEDEMA [None]
  - LEUKOPENIA [None]
  - MALAISE [None]
  - SKIN FISSURES [None]
